FAERS Safety Report 6823224-2 (Version None)
Quarter: 2010Q3

REPORT INFORMATION
  Report Type: 
  Country: None (occurrence: None)
  Receive Date: 20100702
  Receipt Date: 20100622
  Transmission Date: 20110219
  Serious: Yes (Hospitalization)
  Sender: FDA-Public Use
  Company Number: 1-22929574

PATIENT
  Age: 24 Year
  Sex: Male
  Weight: 88.4514 kg

DRUGS (2)
  1. BACTRIM DS [Suspect]
     Indication: INFECTION PROPHYLAXIS
     Dosage: 1 TAB; DAILY ON M, W, F, ORAL
     Route: 048
     Dates: start: 20100505, end: 20100604
  2. BACTRIM DS [Suspect]
     Indication: LUNG INFECTION
     Dosage: 1 TAB; DAILY ON M, W, F, ORAL
     Route: 048
     Dates: start: 20100505, end: 20100604

REACTIONS (14)
  - ABDOMINAL PAIN [None]
  - CONFUSIONAL STATE [None]
  - DECREASED APPETITE [None]
  - DEPRESSED LEVEL OF CONSCIOUSNESS [None]
  - DIZZINESS [None]
  - DYSPNOEA [None]
  - HALLUCINATION [None]
  - HEADACHE [None]
  - INSOMNIA [None]
  - MALAISE [None]
  - RESPIRATORY RATE DECREASED [None]
  - SLEEP DISORDER [None]
  - VOMITING [None]
  - YELLOW SKIN [None]
